FAERS Safety Report 8467843-9 (Version None)
Quarter: 2012Q2

REPORT INFORMATION
  Report Type: 
  Country: None (occurrence: None)
  Receive Date: 20120626
  Receipt Date: 20120618
  Transmission Date: 20120825
  Serious: Yes (Hospitalization)
  Sender: FDA-Public Use
  Company Number: JP-GLAXOSMITHKLINE-B0794261A

PATIENT
  Sex: Female

DRUGS (35)
  1. RISPERIDONE [Concomitant]
     Indication: RESTLESSNESS
     Dosage: 8MG PER DAY
     Route: 048
     Dates: start: 20120215, end: 20120314
  2. SEROQUEL [Concomitant]
     Route: 048
     Dates: start: 20100601, end: 20120201
  3. DEPAKENE [Concomitant]
     Indication: RESTLESSNESS
     Dosage: 600MG PER DAY
     Route: 048
     Dates: start: 20120215, end: 20120326
  4. FLUOROMETHOLONE [Concomitant]
     Dosage: 5ML PER DAY
     Route: 031
     Dates: start: 20120213, end: 20120213
  5. PREDNISOLONE [Concomitant]
     Dosage: 3IUAX PER DAY
     Route: 048
     Dates: start: 20120326, end: 20120326
  6. ZYPREXA [Concomitant]
     Indication: RESTLESSNESS
     Dosage: 20MG PER DAY
     Route: 048
     Dates: start: 20120215, end: 20120328
  7. VALPROIC ACID [Concomitant]
     Route: 048
     Dates: start: 20051201
  8. FLURAZEPAM DIHYDROCHLORIDE [Concomitant]
     Route: 048
     Dates: start: 20080401, end: 20100601
  9. FLURAZEPAM DIHYDROCHLORIDE [Concomitant]
     Route: 048
     Dates: start: 20111201, end: 20120201
  10. FAMOTIDINE [Concomitant]
     Dosage: 20MG PER DAY
     Route: 048
     Dates: start: 20120329, end: 20120513
  11. LAMICTAL [Suspect]
     Dosage: 50MG PER DAY
     Route: 048
     Dates: start: 20120301, end: 20120307
  12. LAMICTAL [Suspect]
     Dosage: 100MG PER DAY
     Route: 048
     Dates: start: 20120308, end: 20120314
  13. RISPERIDONE [Concomitant]
     Route: 048
     Dates: start: 20080501, end: 20090101
  14. ZYPREXA [Concomitant]
     Route: 048
     Dates: start: 20100601, end: 20101201
  15. ZYPREXA [Concomitant]
     Route: 048
     Dates: start: 20111201, end: 20120201
  16. NEULEPTIL [Concomitant]
     Route: 048
     Dates: start: 20080401, end: 20100601
  17. NEULEPTIL [Concomitant]
     Indication: INSOMNIA
     Dosage: 3IUAX PER DAY
     Route: 048
     Dates: start: 20120215, end: 20120328
  18. CETIRIZINE HYDROCHLORIDE [Concomitant]
     Dosage: 10MG PER DAY
     Route: 048
     Dates: start: 20120329, end: 20120513
  19. BETAMETHASONE DIPROPIONATE [Concomitant]
     Route: 062
  20. LEVOMEPROMAZINE [Concomitant]
     Route: 048
     Dates: start: 20080401, end: 20100601
  21. FLURAZEPAM DIHYDROCHLORIDE [Concomitant]
     Route: 048
     Dates: start: 20101201, end: 20110201
  22. SODIUM PICOSULPHATE [Concomitant]
     Route: 048
  23. RISPERIDONE [Concomitant]
     Route: 048
     Dates: start: 20110401, end: 20120201
  24. SEROQUEL [Concomitant]
     Indication: RESTLESSNESS
     Dosage: 300MG PER DAY
     Route: 048
     Dates: start: 20120215, end: 20120328
  25. LEVOMEPROMAZINE [Concomitant]
     Route: 048
     Dates: start: 20111201, end: 20120201
  26. NEULEPTIL [Concomitant]
     Route: 048
     Dates: start: 20111001, end: 20120201
  27. ACETAMINOPHEN [Concomitant]
     Route: 048
  28. LAMICTAL [Suspect]
     Indication: BIPOLAR DISORDER
     Dosage: 25MG PER DAY
     Route: 048
     Dates: start: 20120215, end: 20120229
  29. LAMICTAL [Suspect]
     Dosage: 200MG PER DAY
     Route: 048
     Dates: start: 20120315, end: 20120318
  30. LEVOMEPROMAZINE [Concomitant]
     Indication: RESTLESSNESS
     Dosage: 50MG PER DAY
     Route: 048
     Dates: start: 20120215, end: 20120328
  31. FLURAZEPAM DIHYDROCHLORIDE [Concomitant]
     Route: 048
     Dates: start: 20110901, end: 20111001
  32. FLURAZEPAM DIHYDROCHLORIDE [Concomitant]
     Indication: INSOMNIA
     Dosage: 2IUAX PER DAY
     Route: 048
     Dates: start: 20120215, end: 20120328
  33. BETAMETHASONE VALERATE [Concomitant]
     Route: 062
  34. NICHIPHAGEN [Concomitant]
     Route: 042
     Dates: start: 20120329, end: 20120409
  35. LEVOMEPROMAZINE [Concomitant]
     Route: 048
     Dates: start: 20110201, end: 20111001

REACTIONS (10)
  - GENERALISED ERYTHEMA [None]
  - EOSINOPHIL PERCENTAGE DECREASED [None]
  - NEUTROPHIL PERCENTAGE INCREASED [None]
  - MONOCYTE PERCENTAGE INCREASED [None]
  - C-REACTIVE PROTEIN INCREASED [None]
  - VULVAL DISORDER [None]
  - ERYTHEMA [None]
  - LYMPHOCYTE PERCENTAGE DECREASED [None]
  - STEVENS-JOHNSON SYNDROME [None]
  - PYREXIA [None]
